FAERS Safety Report 7724452-4 (Version None)
Quarter: 2011Q3

REPORT INFORMATION
  Report Type: 
  Country: None (occurrence: None)
  Receive Date: 20110901
  Receipt Date: 20110819
  Transmission Date: 20111222
  Serious: Yes (Hospitalization)
  Sender: FDA-Public Use
  Company Number: US-GLAXOSMITHKLINE-A0875984A

PATIENT
  Age: 56 Year
  Sex: Female

DRUGS (2)
  1. AVANDIA [Suspect]
     Indication: DIABETES MELLITUS
     Dosage: 4MG PER DAY
     Route: 048
     Dates: start: 20050101, end: 20061201
  2. AVANDARYL [Suspect]
     Indication: DIABETES MELLITUS
     Route: 048

REACTIONS (4)
  - CARDIAC ARREST [None]
  - HEART RATE INCREASED [None]
  - CARDIOVASCULAR DISORDER [None]
  - SUPRAVENTRICULAR TACHYCARDIA [None]
